FAERS Safety Report 16119766 (Version 10)
Quarter: 2019Q4

REPORT INFORMATION
  Report Type: Spontaneous
  Country: US (occurrence: US)
  Receive Date: 20190326
  Receipt Date: 20191007
  Transmission Date: 20200122
  Serious: Yes (Hospitalization)
  Sender: FDA-Public Use
  Company Number: US-ACTELION-A-US2019-188074

PATIENT
  Age: 60 Year
  Sex: Female
  Weight: 70.3 kg

DRUGS (9)
  1. UPTRAVI [Suspect]
     Active Substance: SELEXIPAG
     Indication: PULMONARY ARTERIAL HYPERTENSION
     Dosage: 1400 MCG, BID
     Route: 048
  2. UPTRAVI [Suspect]
     Active Substance: SELEXIPAG
     Dosage: 400 MCG AM, 600 MCG PM
     Route: 048
  3. ADCIRCA [Concomitant]
     Active Substance: TADALAFIL
  4. WARFARIN [Concomitant]
     Active Substance: WARFARIN
  5. UPTRAVI [Suspect]
     Active Substance: SELEXIPAG
     Dosage: 400 MCG, BID
     Route: 048
  6. UPTRAVI [Suspect]
     Active Substance: SELEXIPAG
     Dosage: 600 MCG, BID
     Route: 048
  7. UPTRAVI [Suspect]
     Active Substance: SELEXIPAG
     Dosage: 1000 MCG, QAM, 800 MCG QPM
     Route: 048
  8. UPTRAVI [Suspect]
     Active Substance: SELEXIPAG
     Dosage: 1000 MCG, BID
     Route: 048
  9. UPTRAVI [Suspect]
     Active Substance: SELEXIPAG
     Dosage: 800 MCG, BID
     Route: 048

REACTIONS (16)
  - Pain in extremity [Not Recovered/Not Resolved]
  - Transfusion [Unknown]
  - Haemoglobin decreased [Unknown]
  - Red blood cell count decreased [Unknown]
  - Adverse reaction [Unknown]
  - Abdominal wall haemorrhage [Unknown]
  - Flank pain [Unknown]
  - Thrombosis [Unknown]
  - Pain in jaw [Unknown]
  - Condition aggravated [Unknown]
  - Haematocrit decreased [Unknown]
  - Nerve compression [Unknown]
  - Hot flush [Unknown]
  - Hyperhidrosis [Not Recovered/Not Resolved]
  - Neck pain [Unknown]
  - Loss of personal independence in daily activities [Not Recovered/Not Resolved]

NARRATIVE: CASE EVENT DATE: 20190331
